FAERS Safety Report 9556106 (Version 2)
Quarter: 2013Q4

REPORT INFORMATION
  Report Type: Spontaneous
  Country: BR (occurrence: BR)
  Receive Date: 20130926
  Receipt Date: 20131108
  Transmission Date: 20140711
  Serious: Yes (Other)
  Sender: FDA-Public Use
  Company Number: BR-NOVOPROD-388116

PATIENT
  Age: 79 Year
  Sex: Male
  Weight: 60 kg

DRUGS (1)
  1. LEVEMIR FLEXPEN [Suspect]
     Indication: TYPE 2 DIABETES MELLITUS
     Dosage: 60 IU, QD (20+40 IU AT 10:00 AND 17:00)
     Route: 058
     Dates: start: 2009

REACTIONS (2)
  - Prostate cancer [Recovering/Resolving]
  - Dementia Alzheimer^s type [Not Recovered/Not Resolved]
